FAERS Safety Report 19488806 (Version 1)
Quarter: 2021Q3

REPORT INFORMATION
  Report Type: Spontaneous
  Country: US (occurrence: US)
  Receive Date: 20210702
  Receipt Date: 20210702
  Transmission Date: 20211014
  Serious: No
  Sender: FDA-Public Use
  Company Number: US-BAUSCH-BL-2021-017752

PATIENT
  Age: 82 Year
  Sex: Male
  Weight: 77.18 kg

DRUGS (2)
  1. BACITRACIN ZINC AND POLYMYXIN B SULFATE [Suspect]
     Active Substance: BACITRACIN ZINC\POLYMYXIN B SULFATE
     Indication: HORDEOLUM
     Route: 031
     Dates: start: 202105, end: 20210513
  2. BACITRACIN ZINC AND POLYMYXIN B SULFATE [Suspect]
     Active Substance: BACITRACIN ZINC\POLYMYXIN B SULFATE
     Indication: PRODUCT USE IN UNAPPROVED INDICATION

REACTIONS (5)
  - Eye pain [Unknown]
  - Inappropriate schedule of product administration [Unknown]
  - Eye irritation [Unknown]
  - Product use in unapproved indication [Unknown]
  - Foreign body sensation in eyes [Unknown]

NARRATIVE: CASE EVENT DATE: 202105
